FAERS Safety Report 8025799-7 (Version None)
Quarter: 2012Q1

REPORT INFORMATION
  Report Type: 
  Country: None (occurrence: None)
  Receive Date: 20120105
  Receipt Date: 20110331
  Transmission Date: 20120608
  Serious: No
  Sender: FDA-Public Use
  Company Number: US-ABBOTT-11P-163-0716488-00

PATIENT
  Age: 62 Year
  Sex: Female
  Weight: 72.64 kg

DRUGS (11)
  1. AMLODIPINE [Concomitant]
     Indication: HYPERTENSION
  2. SYNTHROID [Suspect]
     Dates: end: 20101101
  3. SYNTHROID [Suspect]
     Dates: start: 20101101
  4. FUROSEMIDE [Concomitant]
     Indication: DIURETIC THERAPY
  5. SYNTHROID [Suspect]
  6. SYNTHROID [Suspect]
  7. LISINOPRIL [Concomitant]
     Indication: HYPERTENSION
  8. SYNTHROID [Suspect]
     Indication: HYPOTHYROIDISM
     Dates: start: 19890101
  9. SIMVASTATIN [Concomitant]
     Indication: BLOOD CHOLESTEROL INCREASED
  10. SYNTHROID [Suspect]
  11. SYNTHROID [Suspect]

REACTIONS (2)
  - TABLET PHYSICAL ISSUE [None]
  - BLOOD THYROID STIMULATING HORMONE ABNORMAL [None]
